FAERS Safety Report 6544841-3 (Version None)
Quarter: 2010Q1

REPORT INFORMATION
  Report Type: 
  Country: None (occurrence: None)
  Receive Date: 20100121
  Receipt Date: 20100112
  Transmission Date: 20100710
  Serious: Yes (Hospitalization, Other)
  Sender: FDA-Public Use
  Company Number: US-JNJFOC-20090708272

PATIENT
  Sex: Female

DRUGS (2)
  1. LEVAQUIN [Suspect]
     Indication: URINARY TRACT INFECTION
     Route: 065
  2. LEVAQUIN [Suspect]
     Indication: KIDNEY INFECTION
     Route: 065

REACTIONS (4)
  - MONARTHRITIS [None]
  - NERVE COMPRESSION [None]
  - NEUROMA [None]
  - TENDON INJURY [None]
